FAERS Safety Report 8020306 (Version 3)
Quarter: 2014Q3

REPORT INFORMATION
  Report Type: Spontaneous
  Country: RU (occurrence: RU)
  Receive Date: 20110705
  Receipt Date: 20140728
  Transmission Date: 20150326
  Serious: Yes (Other)
  Sender: FDA-Public Use
  Company Number: RU-RANBAXY-2010R3-38457

PATIENT
  Age: 43 Year
  Sex: Female
  Weight: 62 kg

DRUGS (2)
  1. MOVALIS [Concomitant]
     Active Substance: MELOXICAM
     Indication: OSTEOCHONDROSIS
     Dosage: UNK
     Route: 065
     Dates: start: 20100920, end: 20100922
  2. SERLIFT [Suspect]
     Active Substance: SERTRALINE HYDROCHLORIDE
     Indication: AUTONOMIC NERVOUS SYSTEM IMBALANCE
     Dosage: 50 MG, QD
     Route: 048
     Dates: start: 20100920, end: 20100922

REACTIONS (5)
  - Pancreatitis chronic [Recovered/Resolved]
  - Nausea [Recovered/Resolved]
  - Diarrhoea [Recovered/Resolved]
  - Condition aggravated [Recovered/Resolved]
  - Vomiting [Recovered/Resolved]
